FAERS Safety Report 6457512-9 (Version None)
Quarter: 2009Q4

REPORT INFORMATION
  Report Type: 
  Country: None (occurrence: None)
  Receive Date: 20091125
  Receipt Date: 20091123
  Transmission Date: 20100525
  Serious: Yes (Other)
  Sender: FDA-Public Use
  Company Number: US-ROXANE LABORATORIES, INC.-2009-RO-01185RO

PATIENT
  Age: 68 Year
  Sex: Female

DRUGS (3)
  1. AZATHIOPRINE [Suspect]
     Indication: PEMPHIGUS
     Dosage: 100 MG
  2. AZATHIOPRINE [Suspect]
     Dosage: 150 MG
  3. PREDNISONE TAB [Suspect]
     Indication: PEMPHIGUS

REACTIONS (6)
  - DISEASE PROGRESSION [None]
  - DRUG INEFFECTIVE [None]
  - HYPERSENSITIVITY [None]
  - NAIL DISORDER [None]
  - NEUTROPENIA [None]
  - TRANSAMINASES INCREASED [None]
